FAERS Safety Report 23081095 (Version 4)
Quarter: 2023Q4

REPORT INFORMATION
  Report Type: Spontaneous
  Country: IT (occurrence: IT)
  Receive Date: 20231018
  Receipt Date: 20231107
  Transmission Date: 20240110
  Serious: Yes (Hospitalization)
  Sender: FDA-Public Use
  Company Number: None

PATIENT
  Age: 66 Year
  Sex: Male

DRUGS (1)
  1. LIBTAYO [Suspect]
     Active Substance: CEMIPLIMAB-RWLC
     Indication: Product used for unknown indication
     Dosage: SOMMINISTRAZIONE DI 1 FIALA DA 350 MG IN SOL. FISIOLOGICA DA 250 ML IN DATA 01/06/23 E IN DATA 23/06
     Route: 042
     Dates: start: 20230601, end: 20230623

REACTIONS (2)
  - Cancer fatigue [Not Recovered/Not Resolved]
  - Hypertransaminasaemia [Not Recovered/Not Resolved]

NARRATIVE: CASE EVENT DATE: 20230707
